FAERS Safety Report 18256912 (Version 1)
Quarter: 2020Q3

REPORT INFORMATION
  Report Type: Spontaneous
  Country: US (occurrence: US)
  Receive Date: 20200910
  Receipt Date: 20200910
  Transmission Date: 20201103
  Serious: No
  Sender: FDA-Public Use
  Company Number: None

PATIENT
  Age: 34 Year
  Sex: Female
  Weight: 65.32 kg

DRUGS (7)
  1. TRIAMTERENE HCTZ [Concomitant]
     Active Substance: HYDROCHLOROTHIAZIDE\TRIAMTERENE
  2. METOPROLOL. [Concomitant]
     Active Substance: METOPROLOL
  3. MEDICAL MARIJUANA [Concomitant]
     Active Substance: CANNABIS SATIVA SUBSP. INDICA TOP
  4. FLONASE [Concomitant]
     Active Substance: FLUTICASONE PROPIONATE
  5. DOXYCYCLINE. [Concomitant]
     Active Substance: DOXYCYCLINE
  6. BUSPIRONE [Concomitant]
     Active Substance: BUSPIRONE HYDROCHLORIDE
  7. MIRENA [Suspect]
     Active Substance: LEVONORGESTREL
     Dates: start: 20200803, end: 20200902

REACTIONS (4)
  - Muscle spasms [None]
  - Device expulsion [None]
  - Hypertension [None]
  - Vulvovaginal pain [None]

NARRATIVE: CASE EVENT DATE: 20200902
